FAERS Safety Report 4758538-3 (Version None)
Quarter: 2005Q3

REPORT INFORMATION
  Report Type: 
  Country: None (occurrence: None)
  Receive Date: 20050826
  Receipt Date: 20050818
  Transmission Date: 20060218
  Serious: Yes (Hospitalization, Other)
  Sender: FDA-Public Use
  Company Number: 2005-08-0833

PATIENT
  Age: 42 Year
  Sex: Female

DRUGS (3)
  1. REBETOL [Suspect]
     Indication: HEPATITIS C
     Dosage: ORAL
     Route: 048
     Dates: start: 20040515, end: 20040921
  2. PEGASYS [Suspect]
     Indication: HEPATITIS C
     Dosage: SUBCUTANEOUS
     Route: 058
     Dates: start: 20040515, end: 20040921
  3. TRIZIVIR [Suspect]
     Indication: HIV INFECTION
     Dosage: 2 QD ORAL
     Route: 048
     Dates: start: 20040615, end: 20050618

REACTIONS (4)
  - ASTHENIA [None]
  - ERYTHROBLAST MORPHOLOGY ABNORMAL [None]
  - PANCYTOPENIA [None]
  - SPINAL MYELOGRAM ABNORMAL [None]
